FAERS Safety Report 13081751 (Version 1)
Quarter: 2017Q1

REPORT INFORMATION
  Report Type: Spontaneous
  Country: US (occurrence: US)
  Receive Date: 20170103
  Receipt Date: 20170103
  Transmission Date: 20170428
  Serious: No
  Sender: FDA-Public Use
  Company Number: US-JAZZ-2016-US-022346

PATIENT
  Sex: Female

DRUGS (36)
  1. ATORVASTATIN [Concomitant]
     Active Substance: ATORVASTATIN
  2. TOPIRAMATE. [Concomitant]
     Active Substance: TOPIRAMATE
  3. XYREM [Suspect]
     Active Substance: SODIUM OXYBATE
     Dosage: 3.75 G, BID
     Route: 048
     Dates: start: 2016, end: 2016
  4. IMITREX [Concomitant]
     Active Substance: SUMATRIPTAN SUCCINATE
  5. MOTRIN [Concomitant]
     Active Substance: IBUPROFEN
  6. DRONABINOL. [Concomitant]
     Active Substance: DRONABINOL
  7. ALPRAZOLAM. [Concomitant]
     Active Substance: ALPRAZOLAM
  8. VITAMIN D3 [Concomitant]
     Active Substance: CHOLECALCIFEROL
  9. CLONAZEPAM. [Concomitant]
     Active Substance: CLONAZEPAM
  10. GLUCOPHAGE [Concomitant]
     Active Substance: METFORMIN HYDROCHLORIDE
  11. COENZYME Q10 [Concomitant]
     Active Substance: UBIDECARENONE
  12. VALTURNA [Concomitant]
     Active Substance: ALISKIREN HEMIFUMARATE\VALSARTAN
  13. VISTARIL                           /00058402/ [Concomitant]
     Active Substance: HYDROXYZINE HYDROCHLORIDE
  14. XYREM [Suspect]
     Active Substance: SODIUM OXYBATE
     Indication: NARCOLEPSY
     Dosage: 3 G, BID
     Route: 048
     Dates: start: 200902, end: 2009
  15. TRAMADOL HCL [Suspect]
     Active Substance: TRAMADOL HYDROCHLORIDE
     Indication: PRODUCT USED FOR UNKNOWN INDICATION
     Dosage: UNK
     Dates: start: 20130228, end: 20161108
  16. RITALIN [Concomitant]
     Active Substance: METHYLPHENIDATE HYDROCHLORIDE
  17. HYDROCHLOROTHIAZIDE. [Concomitant]
     Active Substance: HYDROCHLOROTHIAZIDE
  18. PROLIA [Concomitant]
     Active Substance: DENOSUMAB
  19. EFFEXOR XR [Concomitant]
     Active Substance: VENLAFAXINE HYDROCHLORIDE
  20. IPRATROPIUM                        /00391402/ [Concomitant]
  21. PULMICORT TURBUHALER [Concomitant]
     Active Substance: BUDESONIDE
  22. AVAPRO [Concomitant]
     Active Substance: IRBESARTAN
  23. PROMETHAZINE [Concomitant]
     Active Substance: PROMETHAZINE\PROMETHAZINE HYDROCHLORIDE
  24. METFORMIN HCL [Concomitant]
     Active Substance: METFORMIN HYDROCHLORIDE
  25. TOPROL XL [Concomitant]
     Active Substance: METOPROLOL SUCCINATE
  26. ASPIRIN                            /00002701/ [Concomitant]
     Active Substance: ASPIRIN
  27. LOVASTATIN. [Concomitant]
     Active Substance: LOVASTATIN
  28. XYREM [Suspect]
     Active Substance: SODIUM OXYBATE
     Dosage: 3 G, BID
     Route: 048
     Dates: start: 2016
  29. ALEVE [Concomitant]
     Active Substance: NAPROXEN SODIUM
  30. CARDIZEM [Concomitant]
     Active Substance: DILTIAZEM HYDROCHLORIDE
  31. XYREM [Suspect]
     Active Substance: SODIUM OXYBATE
     Dosage: 3 G, BID
     Route: 048
     Dates: start: 201305, end: 2016
  32. CYANOCOBALAMIN. [Concomitant]
     Active Substance: CYANOCOBALAMIN
  33. XYREM [Suspect]
     Active Substance: SODIUM OXYBATE
     Indication: CATAPLEXY
     Dosage: DOSE ADJUSTMENT
     Route: 048
     Dates: start: 2009, end: 2013
  34. ESTRADIOL. [Concomitant]
     Active Substance: ESTRADIOL
  35. MIRAPEX [Concomitant]
     Active Substance: PRAMIPEXOLE DIHYDROCHLORIDE
  36. NORVASC V [Concomitant]

REACTIONS (6)
  - Bone disorder [Unknown]
  - Feeling abnormal [Unknown]
  - Abdominal discomfort [Unknown]
  - Fatigue [Unknown]
  - Intentional product use issue [Unknown]
  - Nervous system disorder [Unknown]

NARRATIVE: CASE EVENT DATE: 2016
